FAERS Safety Report 4594805-4 (Version None)
Quarter: 2005Q1

REPORT INFORMATION
  Report Type: 
  Country: None (occurrence: None)
  Receive Date: 20050223
  Receipt Date: 20050209
  Transmission Date: 20050727
  Serious: Yes (Other)
  Sender: FDA-Public Use
  Company Number: SP-2005-002035

PATIENT
  Age: 85 Year
  Sex: Female
  Weight: 87 kg

DRUGS (4)
  1. OLMETEC [Suspect]
     Indication: HYPERTENSION
     Dosage: 10 MG QD PO
     Route: 048
     Dates: start: 20041130, end: 20041204
  2. NITROGLYCERIN [Concomitant]
  3. VERAPAMIL [Concomitant]
  4. FUROSEMIDE [Concomitant]

REACTIONS (5)
  - BLOOD PRESSURE SYSTOLIC INCREASED [None]
  - DRUG EFFECT DECREASED [None]
  - MONOPARESIS [None]
  - TRANSIENT ISCHAEMIC ATTACK [None]
  - VERTIGO [None]
